FAERS Safety Report 18533993 (Version 1)
Quarter: 2020Q4

REPORT INFORMATION
  Report Type: Spontaneous
  Country: US (occurrence: US)
  Receive Date: 20201122
  Receipt Date: 20201122
  Transmission Date: 20210114
  Serious: Yes (Disabling)
  Sender: FDA-Public Use
  Company Number: None

PATIENT
  Age: 60 Year
  Sex: Male
  Weight: 112.5 kg

DRUGS (7)
  1. ARNUITY ELLIPTA [Suspect]
     Active Substance: FLUTICASONE FUROATE
     Indication: EOSINOPHILIC OESOPHAGITIS
     Route: 055
  2. KIRKLAND MULTI MENS FORMULA [Concomitant]
  3. PHYTOSOME [Concomitant]
  4. PANTOPRAZOLE [Suspect]
     Active Substance: PANTOPRAZOLE
  5. THORNE [Concomitant]
  6. QUERCETIN [Concomitant]
     Active Substance: QUERCETIN
  7. STENGLER REFLUX [Concomitant]

REACTIONS (4)
  - Oedema peripheral [None]
  - Anger [None]
  - Mood swings [None]
  - Choking [None]

NARRATIVE: CASE EVENT DATE: 20201104
